FAERS Safety Report 17345759 (Version 1)
Quarter: 2020Q1

REPORT INFORMATION
  Report Type: Report from Study
  Country: IR (occurrence: IR)
  Receive Date: 20200129
  Receipt Date: 20200129
  Transmission Date: 20200409
  Serious: Yes (Hospitalization)
  Sender: FDA-Public Use
  Company Number: IR-NOVOPROD-708893

PATIENT
  Age: 46 Year
  Sex: Female
  Weight: 78 kg

DRUGS (8)
  1. NOVOMIX 30 FLEXPEN [Suspect]
     Active Substance: INSULIN ASPART
     Indication: TYPE 2 DIABETES MELLITUS
     Dosage: 88 IU, QD
     Route: 058
  2. LEVOTHYROXINE. [Concomitant]
     Active Substance: LEVOTHYROXINE
     Indication: HYPOTHYROIDISM
  3. NITROGLYCERINE [Concomitant]
     Active Substance: NITROGLYCERIN
     Dosage: 2.6 MG
  4. PLAVIX [Concomitant]
     Active Substance: CLOPIDOGREL BISULFATE
  5. CONCOR [Concomitant]
     Active Substance: BISOPROLOL FUMARATE
  6. GLUCOPHAGE [Concomitant]
     Active Substance: METFORMIN HYDROCHLORIDE
  7. LOSARTAN. [Concomitant]
     Active Substance: LOSARTAN
     Indication: HYPERTENSION
  8. ASA [Concomitant]
     Active Substance: ASPIRIN

REACTIONS (2)
  - Urticaria [Recovered/Resolved]
  - Blood glucose increased [Unknown]
